FAERS Safety Report 9577519 (Version 1)
Quarter: 2013Q4

REPORT INFORMATION
  Report Type: Spontaneous
  Country: US (occurrence: US)
  Receive Date: 20131001
  Receipt Date: 20131001
  Transmission Date: 20140711
  Serious: No
  Sender: FDA-Public Use
  Company Number: US-AMGEN-USASP2013008256

PATIENT
  Age: 31 Year
  Sex: Female
  Weight: 63.49 kg

DRUGS (8)
  1. ENBREL [Suspect]
     Indication: PRODUCT USED FOR UNKNOWN INDICATION
     Dosage: 50 MG, QWK FOR SIX MONTHS
     Route: 058
  2. HUMIRA [Concomitant]
     Dosage: UNK
  3. FLUOCINONIDE [Concomitant]
     Dosage: 0.05%, UNK
  4. CLOBETASOL [Concomitant]
     Dosage: 0.05%, UNK
  5. CLINDAMYCIN [Concomitant]
     Dosage: 1%, LOT
  6. DOXYCYCLINE                        /00055703/ [Concomitant]
     Dosage: 100 MG, UNK
  7. MULTIVITAMINS, PLAIN [Concomitant]
     Dosage: UNK
  8. CALCIUM D                          /01483701/ [Concomitant]
     Dosage: UNK

REACTIONS (5)
  - Therapeutic response decreased [Recovering/Resolving]
  - Psoriasis [Recovering/Resolving]
  - Injection site bruising [Unknown]
  - Injection site pain [Unknown]
  - Acne cystic [Unknown]
